FAERS Safety Report 6172505-7 (Version None)
Quarter: 2009Q2

REPORT INFORMATION
  Report Type: 
  Country: None (occurrence: None)
  Receive Date: 20090427
  Receipt Date: 20090416
  Transmission Date: 20091009
  Serious: Yes (Life-Threatening)
  Sender: FDA-Public Use
  Company Number: 248441

PATIENT
  Age: 45 Year
  Sex: Female

DRUGS (3)
  1. NOREPINEPHRINE BITARTRATE [Suspect]
     Indication: CEREBROVASCULAR SPASM
     Dosage: 2.5 MCG/KG/MIN; 1.1 MCG/KG/MIN; .5 MCG/KG/MIN;
  2. DOBUTAMINE HCL [Concomitant]
  3. PAPAVERINE [Concomitant]

REACTIONS (9)
  - CARDIOGENIC SHOCK [None]
  - CARDIOMYOPATHY [None]
  - CEREBRAL ISCHAEMIA [None]
  - MITRAL VALVE INCOMPETENCE [None]
  - NO THERAPEUTIC RESPONSE [None]
  - OLIGURIA [None]
  - PULMONARY ARTERIAL WEDGE PRESSURE INCREASED [None]
  - RESPIRATORY DISTRESS [None]
  - RESPIRATORY FAILURE [None]
